FAERS Safety Report 6385427-3 (Version None)
Quarter: 2009Q4

REPORT INFORMATION
  Report Type: 
  Country: None (occurrence: None)
  Receive Date: 20091002
  Receipt Date: 20080829
  Transmission Date: 20100525
  Serious: No
  Sender: FDA-Public Use
  Company Number: US-ASTRAZENECA-2008UW17910

PATIENT
  Age: 44 Year
  Sex: Female
  Weight: 106.6 kg

DRUGS (5)
  1. ARIMIDEX [Suspect]
     Indication: BREAST CANCER
     Route: 048
  2. COZAAR [Concomitant]
  3. VYTORIN [Concomitant]
  4. TRAMADOL HCL [Concomitant]
  5. LEXAPRO [Concomitant]

REACTIONS (2)
  - FIBROMYALGIA [None]
  - MALAISE [None]
